FAERS Safety Report 13032756 (Version 2)
Quarter: 2017Q2

REPORT INFORMATION
  Report Type: Spontaneous
  Country: GB (occurrence: GB)
  Receive Date: 20161215
  Receipt Date: 20170517
  Transmission Date: 20170830
  Serious: Yes (Death, Hospitalization)
  Sender: FDA-Public Use
  Company Number: GB-ELI_LILLY_AND_COMPANY-GB201612003475

PATIENT
  Sex: Female

DRUGS (1)
  1. OLANZAPINE. [Suspect]
     Active Substance: OLANZAPINE
     Indication: PRODUCT USED FOR UNKNOWN INDICATION
     Dosage: UNK UNK, IN THE MORNING AND IN THE NIGHT
     Route: 065
     Dates: start: 201507

REACTIONS (8)
  - Depression suicidal [Fatal]
  - Bipolar I disorder [Fatal]
  - Trance [Fatal]
  - General physical health deterioration [Fatal]
  - Suicidal ideation [Fatal]
  - Completed suicide [Fatal]
  - Hallucination, auditory [Fatal]
  - Altered state of consciousness [Fatal]

NARRATIVE: CASE EVENT DATE: 20151007
